FAERS Safety Report 6410314-1 (Version None)
Quarter: 2009Q4

REPORT INFORMATION
  Report Type: 
  Country: None (occurrence: None)
  Receive Date: 20091022
  Receipt Date: 20091019
  Transmission Date: 20100525
  Serious: Yes (Death, Hospitalization)
  Sender: FDA-Public Use
  Company Number: IT-ROCHE-594550

PATIENT
  Sex: Female
  Weight: 54 kg

DRUGS (3)
  1. CAPECITABINE [Suspect]
     Route: 065
  2. BEVACIZUMAB [Suspect]
     Dosage: LAST DOSE PRIOR TO SAE: 27 JUNE 2008, DOSAGE FORM TAKEN AS SOLUTION FROM CODING GUIDELINE.
     Route: 042
     Dates: start: 20071221
  3. PACLITAXEL [Suspect]
     Dosage: LAST DOSE PRIOR TO SAE: 27 JUN 2008, DOSAGE FORM REPORTED AS: IV
     Route: 042
     Dates: start: 20071221

REACTIONS (2)
  - DEHYDRATION [None]
  - HYPERNATRAEMIA [None]
